FAERS Safety Report 20843228 (Version 3)
Quarter: 2022Q2

REPORT INFORMATION
  Report Type: Spontaneous
  Country: US (occurrence: US)
  Receive Date: 20220518
  Receipt Date: 20220614
  Transmission Date: 20220721
  Serious: No
  Sender: FDA-Public Use
  Company Number: US-BIOGEN-2022BI01111471

PATIENT
  Age: 29 Year
  Sex: Female

DRUGS (1)
  1. TYSABRI [Suspect]
     Active Substance: NATALIZUMAB
     Indication: Multiple sclerosis
     Dosage: INFUSED OVER 1 HOUR
     Route: 042
     Dates: start: 20190329

REACTIONS (5)
  - Fungal infection [Unknown]
  - Bacterial infection [Unknown]
  - Postoperative wound infection [Unknown]
  - Papilloma viral infection [Unknown]
  - Eczema [Unknown]

NARRATIVE: CASE EVENT DATE: 20220209
